FAERS Safety Report 25152260 (Version 1)
Quarter: 2025Q2

REPORT INFORMATION
  Report Type: Spontaneous
  Country: GB (occurrence: GB)
  Receive Date: 20250402
  Receipt Date: 20250402
  Transmission Date: 20250716
  Serious: Yes (Disabling)
  Sender: ELI LILLY AND CO
  Company Number: GB-MHRA-TPP23861921C7322295YC1742480058966

PATIENT
  Age: 52 Year
  Sex: Female
  Weight: 91 kg

DRUGS (13)
  1. MOUNJARO [Suspect]
     Active Substance: TIRZEPATIDE
     Indication: Product used for unknown indication
     Route: 065
     Dates: start: 20241024, end: 20250128
  2. FEXOFENADINE [Concomitant]
     Active Substance: FEXOFENADINE HYDROCHLORIDE
     Indication: Ill-defined disorder
     Route: 065
     Dates: start: 20250126, end: 20250225
  3. METOCLOPRAMIDE [Concomitant]
     Active Substance: METOCLOPRAMIDE
     Indication: Ill-defined disorder
     Route: 065
     Dates: start: 20250126, end: 20250204
  4. AMLODIPINE [Concomitant]
     Active Substance: AMLODIPINE BESYLATE
     Indication: Ill-defined disorder
     Dates: start: 20240720
  5. ATORVASTATIN [Concomitant]
     Active Substance: ATORVASTATIN
     Indication: Ill-defined disorder
     Dates: start: 20240720
  6. EMPAGLIFLOZIN [Concomitant]
     Active Substance: EMPAGLIFLOZIN
     Indication: Ill-defined disorder
     Route: 065
     Dates: start: 20240720
  7. LABETALOL HYDROCHLORIDE [Concomitant]
     Active Substance: LABETALOL HYDROCHLORIDE
     Indication: Ill-defined disorder
     Dates: start: 20240720
  8. LATANOPROST [Concomitant]
     Active Substance: LATANOPROST
     Indication: Ill-defined disorder
     Dates: start: 20240720
  9. SULFASALAZINE [Concomitant]
     Active Substance: SULFASALAZINE
     Indication: Ill-defined disorder
     Route: 065
     Dates: start: 20240720, end: 20250122
  10. SUKKARTO SR [Concomitant]
     Indication: Ill-defined disorder
     Dates: start: 20240720
  11. CALCIUM CARBONATE\CHOLECALCIFEROL [Concomitant]
     Active Substance: CALCIUM CARBONATE\CHOLECALCIFEROL
     Indication: Ill-defined disorder
     Route: 065
     Dates: start: 20240720
  12. SULFASALAZINE [Concomitant]
     Active Substance: SULFASALAZINE
     Indication: Ill-defined disorder
     Route: 065
     Dates: start: 20250122
  13. RAMIPRIL [Concomitant]
     Active Substance: RAMIPRIL
     Indication: Ill-defined disorder
     Dates: start: 20250217

REACTIONS (3)
  - Rash macular [Recovered/Resolved]
  - Vomiting [Unknown]
  - Diarrhoea [Unknown]
